FAERS Safety Report 9449055 (Version 1)
Quarter: 2013Q3

REPORT INFORMATION
  Report Type: Spontaneous
  Country: IT (occurrence: None)
  Receive Date: 20130806
  Receipt Date: 20130806
  Transmission Date: 20140515
  Serious: Yes (Death)
  Sender: FDA-Public Use
  Company Number: 2013IT002208

PATIENT
  Age: 75 Year
  Sex: Male
  Weight: 95 kg

DRUGS (5)
  1. PONATINIB (AP24534) TABLET [Suspect]
     Indication: ACUTE LYMPHOCYTIC LEUKAEMIA
     Route: 048
     Dates: start: 20120820, end: 20130508
  2. PONATINIB (AP24534) TABLET [Suspect]
     Indication: CHROMOSOME ANALYSIS ABNORMAL
     Route: 048
     Dates: start: 20120820, end: 20130508
  3. FONDAPARINUXN(FONDAPARINUX) [Concomitant]
  4. VALSARTAN (VALSARTAN) [Concomitant]
  5. FUROSEMIDE (FUROSEMIDE) [Concomitant]

REACTIONS (1)
  - Death [None]
